FAERS Safety Report 18612238 (Version 1)
Quarter: 2020Q4

REPORT INFORMATION
  Report Type: Spontaneous
  Country: IN (occurrence: IN)
  Receive Date: 20201214
  Receipt Date: 20201214
  Transmission Date: 20210114
  Serious: Yes (Other)
  Sender: FDA-Public Use
  Company Number: IN-AMNEAL PHARMACEUTICALS-2020-AMRX-03884

PATIENT
  Age: 41 Year
  Sex: Male

DRUGS (10)
  1. RITUXIMAB. [Concomitant]
     Active Substance: RITUXIMAB
     Indication: BURKITT^S LYMPHOMA STAGE III
     Dosage: 1ST AND 2ND CYCLE OF R-CODOX-M/R-IVAC PROTOCOL
     Route: 065
  2. DOXORUBICIN [Concomitant]
     Active Substance: DOXORUBICIN
     Indication: BURKITT^S LYMPHOMA STAGE III
     Dosage: 1ST AND 2ND CYCLE OF R-CODOX-M/R-IVAC PROTOCOL
     Route: 065
  3. METHOTREXATE. [Suspect]
     Active Substance: METHOTREXATE
     Dosage: 1.5 G/M2 OVER A PERIOD OF 24 HOURS, REDUCED DOSE 50 %, 8 WEEK AFTER FIRST CYCLE
     Route: 065
  4. VINCRISTINE [Concomitant]
     Active Substance: VINCRISTINE
     Indication: BURKITT^S LYMPHOMA STAGE III
     Dosage: 1ST AND 2ND CYCLE OF R-CODOX-M/R-IVAC PROTOCOL
     Route: 065
  5. IFOSFAMIDE. [Concomitant]
     Active Substance: IFOSFAMIDE
     Indication: BURKITT^S LYMPHOMA STAGE III
     Dosage: 1ST AND 2ND CYCLE OF R-CODOX-M/R-IVAC PROTOCOL
     Route: 065
  6. CYTARABINE. [Concomitant]
     Active Substance: CYTARABINE
     Indication: BURKITT^S LYMPHOMA STAGE III
     Dosage: HIGH DOSE, 1ST AND 2ND CYCLE OF R-CODOX-M/R-IVAC PROTOCOL
     Route: 065
  7. LEUCOVORINE [Concomitant]
     Active Substance: LEUCOVORIN
     Indication: BURKITT^S LYMPHOMA STAGE III
     Dosage: 15 MILLIGRAM/SQ. METER, EVERY 6HR, 12 DOSES
     Route: 065
  8. ETOPOSIDE. [Concomitant]
     Active Substance: ETOPOSIDE
     Indication: BURKITT^S LYMPHOMA STAGE III
     Dosage: 1ST AND 2ND CYCLE OF R-CODOX-M/R-IVAC PROTOCOL
     Route: 065
  9. CYCLOPHOSPHAMIDE. [Concomitant]
     Active Substance: CYCLOPHOSPHAMIDE
     Indication: BURKITT^S LYMPHOMA STAGE III
     Dosage: 1ST AND 2ND CYCLE OF R-CODOX-M/R-IVAC PROTOCOL
     Route: 065
  10. METHOTREXATE. [Suspect]
     Active Substance: METHOTREXATE
     Indication: BURKITT^S LYMPHOMA STAGE III
     Dosage: 3 G/M2/DOSE INFUSION OVER 24 HOURS FIRST CYCLE
     Route: 065

REACTIONS (1)
  - Palmar-plantar erythrodysaesthesia syndrome [Recovered/Resolved]
